FAERS Safety Report 16176101 (Version 1)
Quarter: 2019Q2

REPORT INFORMATION
  Report Type: Spontaneous
  Country: US (occurrence: US)
  Receive Date: 20190409
  Receipt Date: 20190409
  Transmission Date: 20190711
  Serious: No
  Sender: FDA-Public Use
  Company Number: US-ASTRAZENECA-2019SE50277

PATIENT

DRUGS (19)
  1. SYMBICORT [Suspect]
     Active Substance: BUDESONIDE\FORMOTEROL FUMARATE DIHYDRATE
     Dosage: 160/4.5 MCG TWO PUFFS TWICE DAY
     Route: 055
  2. IBUPROFEN. [Concomitant]
     Active Substance: IBUPROFEN
  3. MICROLET LANCET [Concomitant]
  4. MIRAPEX [Concomitant]
     Active Substance: PRAMIPEXOLE DIHYDROCHLORIDE
  5. PRILOSEC OTC [Suspect]
     Active Substance: OMEPRAZOLE MAGNESIUM
     Route: 048
  6. TUDORZA [Suspect]
     Active Substance: ACLIDINIUM BROMIDE
     Dosage: 400 MCG ONE PUFF TWICE A DAY
     Route: 055
  7. CHANTIX [Concomitant]
     Active Substance: VARENICLINE TARTRATE
  8. CLARINEX [Concomitant]
     Active Substance: DESLORATADINE
  9. MONTELUKAST [Concomitant]
     Active Substance: MONTELUKAST SODIUM
  10. METOPROLOL TARTRATE. [Suspect]
     Active Substance: METOPROLOL TARTRATE
     Route: 048
  11. ONGLYZA [Suspect]
     Active Substance: SAXAGLIPTIN HYDROCHLORIDE
     Route: 048
  12. LOMOTIL [Concomitant]
     Active Substance: ATROPINE SULFATE\DIPHENOXYLATE HYDROCHLORIDE
  13. LISINOPRIL. [Suspect]
     Active Substance: LISINOPRIL
     Route: 048
  14. HYDROCODONE [Concomitant]
     Active Substance: HYDROCODONE
  15. LASIX [Concomitant]
     Active Substance: FUROSEMIDE
  16. ASPIRIN. [Concomitant]
     Active Substance: ASPIRIN
  17. BACLOFEN. [Concomitant]
     Active Substance: BACLOFEN
  18. ALBUTEROL. [Concomitant]
     Active Substance: ALBUTEROL
  19. AMLODIPINE [Concomitant]
     Active Substance: AMLODIPINE BESYLATE

REACTIONS (1)
  - Hypersensitivity [Unknown]
